FAERS Safety Report 6895615-5 (Version None)
Quarter: 2010Q3

REPORT INFORMATION
  Report Type: 
  Country: None (occurrence: None)
  Receive Date: 20100802
  Receipt Date: 20100728
  Transmission Date: 20110219
  Serious: Yes (Death, Other)
  Sender: FDA-Public Use
  Company Number: PHHY2010US37214

PATIENT
  Sex: Female

DRUGS (1)
  1. EXJADE [Suspect]
     Indication: NEOPLASM
     Dosage: 1250 MG DAILY
     Route: 048

REACTIONS (4)
  - ARRHYTHMIA [None]
  - DEATH [None]
  - FATIGUE [None]
  - HYPOTENSION [None]
